FAERS Safety Report 10183406 (Version 2)
Quarter: 2014Q2

REPORT INFORMATION
  Report Type: Spontaneous
  Country: US (occurrence: US)
  Receive Date: 20140520
  Receipt Date: 20140630
  Transmission Date: 20141212
  Serious: Yes (Other)
  Sender: FDA-Public Use
  Company Number: US-PFIZER INC-2014136344

PATIENT
  Age: 60 Year
  Sex: Female
  Weight: 104.31 kg

DRUGS (2)
  1. LYRICA [Suspect]
     Indication: NEUROPATHY PERIPHERAL
     Dosage: 600 MG (300MG X 2), DAILY
     Route: 048
     Dates: start: 20140405
  2. LYRICA [Suspect]
     Dosage: 100 MG, 2X/DAY
     Route: 048
     Dates: start: 2014

REACTIONS (6)
  - Weight increased [Unknown]
  - Somnolence [Unknown]
  - Diplopia [Unknown]
  - Constipation [Unknown]
  - Dizziness [Unknown]
  - Oedema [Unknown]
